FAERS Safety Report 14008921 (Version 2)
Quarter: 2017Q4

REPORT INFORMATION
  Report Type: Spontaneous
  Country: DE (occurrence: DE)
  Receive Date: 20170925
  Receipt Date: 20171010
  Transmission Date: 20180321
  Serious: Yes (Life-Threatening, Hospitalization, Other)
  Sender: FDA-Public Use
  Company Number: DE-JUBILANT CADISTA PHARMACEUTICALS-2017JUB00336

PATIENT
  Age: 25 Year
  Sex: Female
  Weight: 65 kg

DRUGS (3)
  1. AMITRIPTYLINE [Suspect]
     Active Substance: AMITRIPTYLINE
     Dosage: 5.5 G, UNK
     Route: 065
  2. QUETIAPINE. [Suspect]
     Active Substance: QUETIAPINE
     Dosage: 10 G, UNK
     Route: 065
  3. ALCOHOL. [Suspect]
     Active Substance: ALCOHOL
     Route: 065

REACTIONS (10)
  - Myoclonus [Recovered/Resolved]
  - Ventricular tachycardia [Recovered/Resolved]
  - Toxicity to various agents [Recovered/Resolved]
  - Overdose [Recovered/Resolved]
  - Suicidal ideation [Recovering/Resolving]
  - Bradypnoea [Recovered/Resolved]
  - Hyperthermia [Recovered/Resolved]
  - Shock [Recovered/Resolved]
  - Coma [Recovered/Resolved]
  - Electrocardiogram QRS complex prolonged [Recovered/Resolved]
